FAERS Safety Report 5547677-5 (Version None)
Quarter: 2007Q4

REPORT INFORMATION
  Report Type: 
  Country: None (occurrence: None)
  Receive Date: 20071211
  Receipt Date: 20070228
  Transmission Date: 20080405
  Serious: No
  Sender: FDA-Public Use
  Company Number: US-AMGEN-KDL211886

PATIENT
  Sex: Female

DRUGS (3)
  1. ENBREL [Suspect]
     Indication: PSORIASIS
     Route: 058
     Dates: start: 20061019, end: 20070225
  2. PREDNISONE [Concomitant]
     Dates: start: 20061102, end: 20061203
  3. HYDROXYZINE [Concomitant]
     Dates: start: 20061102

REACTIONS (1)
  - LIGAMENT RUPTURE [None]
